FAERS Safety Report 5388963-1 (Version None)
Quarter: 2007Q3

REPORT INFORMATION
  Report Type: 
  Country: None (occurrence: None)
  Receive Date: 20070717
  Receipt Date: 20070710
  Transmission Date: 20080115
  Serious: Yes (Other)
  Sender: FDA-Public Use
  Company Number: PHBS2004BR08156

PATIENT
  Age: 68 Year
  Sex: Female
  Weight: 80 kg

DRUGS (8)
  1. FORASEQ [Suspect]
     Indication: ASTHMA
     Dosage: 1 DF, Q12H
     Dates: start: 20040201
  2. ATROVENT [Concomitant]
     Indication: ASTHMA
     Dosage: MINIMUM ONCE DAILY 10 DRP
  3. BEROTEC [Concomitant]
     Indication: ASTHMA
  4. NIMESULIDE [Concomitant]
     Indication: OSTEOARTHRITIS
     Route: 048
  5. OMEPRAZOLE [Concomitant]
     Indication: PROPHYLAXIS
  6. RIVOTRIL [Concomitant]
     Indication: FEELING OF RELAXATION
     Dosage: 1 DF/DAY
     Route: 048
  7. ENALAPRIL CHLORTALIDONE [Concomitant]
     Indication: HYPERTENSION
     Dosage: 10 MG, BID
  8. AMINOPHYLLINE [Concomitant]
     Dosage: UNK, PRN

REACTIONS (10)
  - ARRHYTHMIA [None]
  - ASTHMA [None]
  - BACK PAIN [None]
  - CHEST DISCOMFORT [None]
  - COUGH [None]
  - EXTRASYSTOLES [None]
  - GAIT DISTURBANCE [None]
  - KNEE ARTHROPLASTY [None]
  - PAIN IN EXTREMITY [None]
  - TREMOR [None]
